FAERS Safety Report 7477123-6 (Version None)
Quarter: 2011Q2

REPORT INFORMATION
  Report Type: 
  Country: None (occurrence: None)
  Receive Date: 20110512
  Receipt Date: 20110126
  Transmission Date: 20111010
  Serious: No
  Sender: FDA-Public Use
  Company Number: US-NOVEN-11US001665

PATIENT
  Sex: Male

DRUGS (1)
  1. DAYTRANA [Suspect]
     Indication: ATTENTION DEFICIT/HYPERACTIVITY DISORDER
     Dosage: 30 MG, QD FOR 9 HOURS
     Route: 062
     Dates: start: 20100701

REACTIONS (10)
  - PAIN IN EXTREMITY [None]
  - APPLICATION SITE DISCOLOURATION [None]
  - WRONG TECHNIQUE IN DRUG USAGE PROCESS [None]
  - APPLICATION SITE ERYTHEMA [None]
  - OFF LABEL USE [None]
  - APPLICATION SITE EXFOLIATION [None]
  - PRODUCT QUALITY ISSUE [None]
  - APPLICATION SITE BURN [None]
  - DRUG PRESCRIBING ERROR [None]
  - DRUG DOSE OMISSION [None]
